FAERS Safety Report 10992481 (Version 2)
Quarter: 2015Q2

REPORT INFORMATION
  Report Type: Report from Study
  Country: CN (occurrence: CN)
  Receive Date: 20150406
  Receipt Date: 20150419
  Transmission Date: 20150821
  Serious: Yes (Death)
  Sender: FDA-Public Use
  Company Number: PHHY2015CN039938

PATIENT
  Sex: Male

DRUGS (1)
  1. EXJADE [Suspect]
     Active Substance: DEFERASIROX
     Indication: MYELODYSPLASTIC SYNDROME
     Dosage: 1240 MG, QD
     Route: 048
     Dates: start: 20140920

REACTIONS (2)
  - Myelodysplastic syndrome [Fatal]
  - Disease progression [Fatal]
